FAERS Safety Report 8117307-7 (Version None)
Quarter: 2012Q1

REPORT INFORMATION
  Report Type: 
  Country: None (occurrence: None)
  Receive Date: 20120206
  Receipt Date: 20120130
  Transmission Date: 20120608
  Serious: Yes (Death, Hospitalization, Disabling, Other)
  Sender: FDA-Public Use
  Company Number: US-ELI_LILLY_AND_COMPANY-US201110006232

PATIENT
  Sex: Male

DRUGS (3)
  1. METFORMIN HCL [Concomitant]
     Dosage: 1000 MG, BID
  2. BYETTA [Suspect]
     Dosage: 10 UG, BID
     Route: 058
     Dates: end: 20111017
  3. BYETTA [Suspect]
     Indication: TYPE 2 DIABETES MELLITUS
     Dosage: UNK, UNKNOWN
     Route: 058

REACTIONS (9)
  - MULTI-ORGAN FAILURE [None]
  - ENDOPHTHALMITIS [None]
  - VOMITING [None]
  - SEPSIS [None]
  - DIABETES MELLITUS INADEQUATE CONTROL [None]
  - URINARY TRACT INFECTION [None]
  - ABDOMINAL PAIN UPPER [None]
  - NAUSEA [None]
  - STAPHYLOCOCCAL BACTERAEMIA [None]
